FAERS Safety Report 13586444 (Version 2)
Quarter: 2017Q2

REPORT INFORMATION
  Report Type: Spontaneous
  Country: SE (occurrence: SE)
  Receive Date: 20170526
  Receipt Date: 20170609
  Transmission Date: 20170830
  Serious: Yes (Other)
  Sender: FDA-Public Use
  Company Number: SE-BRISTOL-MYERS SQUIBB COMPANY-BMS-2017-045499

PATIENT
  Age: 66 Year
  Sex: Female

DRUGS (6)
  1. ELIQUIS [Suspect]
     Active Substance: APIXABAN
     Indication: CEREBROVASCULAR ACCIDENT PROPHYLAXIS
     Dosage: 5 MG, BID
     Route: 065
     Dates: start: 20170126
  2. SELOKEN                            /00376902/ [Concomitant]
     Active Substance: METOPROLOL TARTRATE
     Indication: PRODUCT USED FOR UNKNOWN INDICATION
     Dosage: 50 MG, QD
     Route: 065
     Dates: start: 20170413
  3. ATORVASTATIN [Concomitant]
     Active Substance: ATORVASTATIN
     Indication: PRODUCT USED FOR UNKNOWN INDICATION
     Dosage: 20 MG, QD
     Route: 065
     Dates: start: 20170210
  4. ENALAPRIL [Concomitant]
     Active Substance: ENALAPRIL
     Indication: PRODUCT USED FOR UNKNOWN INDICATION
     Dosage: 5 MG, QD
     Route: 065
     Dates: start: 20170210
  5. ELIQUIS [Suspect]
     Active Substance: APIXABAN
     Indication: SINUS NODE DYSFUNCTION
     Route: 065
  6. SELOKEN                            /00376902/ [Concomitant]
     Active Substance: METOPROLOL TARTRATE
     Indication: FLUSHING
     Dosage: 100 MG, QD
     Route: 065
     Dates: start: 20170308, end: 20170413

REACTIONS (12)
  - Pain [Recovered/Resolved]
  - Irritability [Unknown]
  - Asthenia [Unknown]
  - Malaise [Unknown]
  - Blood creatinine increased [Unknown]
  - Dyspepsia [Unknown]
  - Cardiac pacemaker insertion [Unknown]
  - Tenosynovitis [Not Recovered/Not Resolved]
  - Nightmare [Unknown]
  - Decreased appetite [Unknown]
  - Hyperhidrosis [Unknown]
  - Fatigue [Not Recovered/Not Resolved]

NARRATIVE: CASE EVENT DATE: 20170308
